FAERS Safety Report 17123161 (Version 1)
Quarter: 2019Q4

REPORT INFORMATION
  Report Type: Spontaneous
  Country: NL (occurrence: NL)
  Receive Date: 20191206
  Receipt Date: 20191206
  Transmission Date: 20200122
  Serious: Yes (Hospitalization, Other)
  Sender: FDA-Public Use
  Company Number: NL-MYLANLABS-2019M1119583

PATIENT
  Age: 56 Year
  Sex: Female

DRUGS (13)
  1. SIMVASTATIN. [Interacting]
     Active Substance: SIMVASTATIN
     Indication: PRODUCT USED FOR UNKNOWN INDICATION
     Dosage: 40 MILLIGRAM, QD
     Route: 065
     Dates: start: 201705
  2. FOSINOPRIL [Interacting]
     Active Substance: FOSINOPRIL
     Indication: PRODUCT USED FOR UNKNOWN INDICATION
     Dosage: 10 MILLIGRAM, QD
     Route: 065
     Dates: start: 201705
  3. ACETYLSALICYLIC ACID [Interacting]
     Active Substance: ASPIRIN
     Indication: PRODUCT USED FOR UNKNOWN INDICATION
     Dosage: 80 MILLIGRAM, QD
     Route: 065
     Dates: start: 201705
  4. OXAZEPAM. [Interacting]
     Active Substance: OXAZEPAM
     Dosage: 10 MILLIGRAM, Q4D (MORE THAN 10 YEARS)
  5. OXAZEPAM. [Interacting]
     Active Substance: OXAZEPAM
     Dosage: 40 MILLIGRAM, QD
     Route: 065
     Dates: start: 20170501
  6. PANTOPRAZOL                        /01263201/ [Concomitant]
     Active Substance: PANTOPRAZOLE
     Dosage: 40 MILLIGRAM, QD
  7. QUETIAPINE. [Suspect]
     Active Substance: QUETIAPINE
     Indication: SLEEP DISORDER
     Dosage: 25 MILLIGRAM, QD
     Route: 065
     Dates: start: 201705
  8. LABETALOL [Concomitant]
     Active Substance: LABETALOL\LABETALOL HYDROCHLORIDE
     Indication: HYPERTENSION
     Dosage: 1 DOSAGE FORM, PRN
  9. TRACYDAL [Interacting]
     Active Substance: TRANYLCYPROMINE SULFATE
     Dosage: 50 MILLIGRAM (20-10-10-10 MG)
     Dates: start: 2016
  10. BRILIQUE [Concomitant]
     Active Substance: TICAGRELOR
     Dosage: 90 MILLIGRAM, QOD
     Dates: start: 201705
  11. SYNAPAUSE                          /00162401/ [Concomitant]
     Dosage: 1 DOSAGE FORM, QD
  12. OXAZEPAM. [Interacting]
     Active Substance: OXAZEPAM
     Indication: PRODUCT USED FOR UNKNOWN INDICATION
     Dosage: UNK (80 TO 90 MG)
  13. TRACYDAL [Interacting]
     Active Substance: TRANYLCYPROMINE SULFATE
     Indication: DEPRESSION
     Dosage: UNK (40 OR 80 MG DESCRIBED)
     Route: 065

REACTIONS (16)
  - Potentiating drug interaction [Unknown]
  - Suicidal ideation [Unknown]
  - Left ventricular dysfunction [Not Recovered/Not Resolved]
  - Alopecia [Not Recovered/Not Resolved]
  - Sleep disorder [Recovering/Resolving]
  - Weight increased [Not Recovered/Not Resolved]
  - Blood pressure diastolic increased [Unknown]
  - Therapeutic response unexpected [Unknown]
  - Drug interaction [Unknown]
  - Bradycardia [Unknown]
  - Depression [Recovering/Resolving]
  - Insomnia [Not Recovered/Not Resolved]
  - Myocardial infarction [Unknown]
  - Hypertensive crisis [Unknown]
  - Orthostatic hypotension [Unknown]
  - Contraindicated product administered [Unknown]

NARRATIVE: CASE EVENT DATE: 20170514
